FAERS Safety Report 5713648-9 (Version None)
Quarter: 2008Q2

REPORT INFORMATION
  Report Type: 
  Country: None (occurrence: None)
  Receive Date: 20080422
  Receipt Date: 20080418
  Transmission Date: 20081010
  Serious: Yes (Hospitalization)
  Sender: FDA-Public Use
  Company Number: GB-MERCK-0712GBR00038

PATIENT
  Age: 72 Year
  Sex: Male
  Weight: 98 kg

DRUGS (8)
  1. CANCIDAS [Suspect]
     Indication: FUNGAL INFECTION
     Route: 051
     Dates: start: 20071202, end: 20071202
  2. LEVOTHYROXINE SODIUM [Concomitant]
     Indication: HYPOTHYROIDISM
     Route: 065
     Dates: start: 20071115, end: 20071213
  3. ANTINEOPLASTIC (UNSPECIFIED) [Concomitant]
     Indication: ACUTE MYELOID LEUKAEMIA
     Route: 065
     Dates: start: 20071101
  4. TEICOPLANIN [Concomitant]
     Indication: SEPSIS
     Route: 065
     Dates: start: 20071126, end: 20071204
  5. FILGRASTIM [Concomitant]
     Route: 065
     Dates: start: 20071130, end: 20071213
  6. ITRACONAZOLE [Concomitant]
     Indication: ANTIFUNGAL PROPHYLAXIS
     Route: 065
     Dates: start: 20071109, end: 20071213
  7. ACYCLOVIR [Concomitant]
     Indication: ANTIVIRAL PROPHYLAXIS
     Route: 065
     Dates: start: 20071109, end: 20071213
  8. TIMENTIN [Concomitant]
     Route: 041
     Dates: start: 20071127, end: 20071203

REACTIONS (3)
  - DERMATITIS EXFOLIATIVE [None]
  - OEDEMA [None]
  - PROTEINURIA [None]
